FAERS Safety Report 6253346-9 (Version None)
Quarter: 2009Q3

REPORT INFORMATION
  Report Type: 
  Country: None (occurrence: None)
  Receive Date: 20090701
  Receipt Date: 20090623
  Transmission Date: 20100115
  Serious: Yes (Other)
  Sender: FDA-Public Use
  Company Number: PHHY2009US25465

PATIENT
  Age: 33 Year
  Sex: Male

DRUGS (2)
  1. NILOTINIB [Suspect]
     Indication: CHRONIC MYELOID LEUKAEMIA
  2. ANAGRELIDE HCL [Concomitant]

REACTIONS (1)
  - PLATELET COUNT INCREASED [None]
